FAERS Safety Report 8459595-3 (Version None)
Quarter: 2012Q2

REPORT INFORMATION
  Report Type: 
  Country: None (occurrence: None)
  Receive Date: 20120622
  Receipt Date: 20120614
  Transmission Date: 20120825
  Serious: Yes (Hospitalization)
  Sender: FDA-Public Use
  Company Number: US-GLAXOSMITHKLINE-A0875848A

PATIENT
  Age: 50 Year
  Sex: Male

DRUGS (6)
  1. CARDIZEM [Concomitant]
  2. LIPITOR [Concomitant]
  3. GLUCOPHAGE [Concomitant]
  4. GLYBURIDE [Concomitant]
  5. AVANDIA [Suspect]
     Indication: DIABETES MELLITUS
     Dosage: 8MG PER DAY
     Route: 048
     Dates: end: 20060728
  6. ATENOLOL [Concomitant]

REACTIONS (2)
  - PAIN [None]
  - CORONARY ARTERY DISEASE [None]
